FAERS Safety Report 25431135 (Version 1)
Quarter: 2025Q2

REPORT INFORMATION
  Report Type: Spontaneous
  Country: US (occurrence: None)
  Receive Date: 20250613
  Receipt Date: 20250613
  Transmission Date: 20250717
  Serious: No
  Sender: OREXO
  Company Number: US-ARIS GLOBAL-ORE202408-000033

PATIENT
  Age: 57 Year
  Sex: Male

DRUGS (1)
  1. ZUBSOLV [Suspect]
     Active Substance: BUPRENORPHINE HYDROCHLORIDE\NALOXONE HYDROCHLORIDE
     Indication: Drug use disorder
     Route: 060
     Dates: start: 20240805, end: 202408

REACTIONS (7)
  - Decreased appetite [Unknown]
  - Thinking abnormal [Unknown]
  - Respiratory rate decreased [Unknown]
  - Respiration abnormal [Unknown]
  - Impaired quality of life [Unknown]
  - Insomnia [Unknown]
  - Malaise [Unknown]

NARRATIVE: CASE EVENT DATE: 20240801
